FAERS Safety Report 8381895-6 (Version None)
Quarter: 2012Q2

REPORT INFORMATION
  Report Type: 
  Country: None (occurrence: None)
  Receive Date: 20120522
  Receipt Date: 20120522
  Transmission Date: 20120825
  Serious: Yes (Other)
  Sender: FDA-Public Use
  Company Number: None

PATIENT
  Sex: Female
  Weight: 57.6068 kg

DRUGS (1)
  1. GILENYA [Suspect]
     Indication: MULTIPLE SCLEROSIS
     Dosage: .5 MG 1 PER DAY PO
     Route: 048
     Dates: start: 20111101, end: 20120513

REACTIONS (1)
  - LYMPHOCYTE COUNT DECREASED [None]
